FAERS Safety Report 8775287 (Version 2)
Quarter: 2013Q1

REPORT INFORMATION
  Report Type: Spontaneous
  Country: US (occurrence: US)
  Receive Date: 20120910
  Receipt Date: 20121018
  Transmission Date: 20140127
  Serious: Yes (Hospitalization)
  Sender: FDA-Public Use
  Company Number: US-ASTRAZENECA-2012SE54228

PATIENT
  Age: 20589 Day
  Sex: Female
  Weight: 84 kg

DRUGS (20)
  1. NKTR-118 [Suspect]
     Indication: CONSTIPATION
     Route: 048
     Dates: start: 20111117, end: 20120722
  2. LISINOPRIL [Suspect]
     Indication: HYPERTENSION
     Route: 048
     Dates: start: 20120411, end: 20120424
  3. LISINOPRIL [Suspect]
     Indication: HYPERTENSION
     Route: 048
     Dates: start: 20120425, end: 20120723
  4. CLONAZEPAM [Concomitant]
     Indication: ANXIETY
     Route: 048
     Dates: start: 200801
  5. DICLOFENAC [Concomitant]
     Indication: ARTHRITIS
     Route: 048
     Dates: start: 200501
  6. GABAPENTIN [Concomitant]
     Indication: FIBROMYALGIA
     Route: 048
     Dates: start: 200801
  7. ALLOPURINOL [Concomitant]
     Indication: GOUT
     Route: 048
     Dates: start: 2010
  8. RANITIDINE [Concomitant]
     Indication: GASTROOESOPHAGEAL REFLUX DISEASE
     Route: 048
     Dates: start: 2011
  9. VIIBRYD [Concomitant]
     Indication: DEPRESSION
     Route: 048
     Dates: start: 20111120, end: 20111212
  10. VIIBRYD [Concomitant]
     Indication: DEPRESSION
     Route: 048
     Dates: start: 20120101
  11. DIPHENHYDRAMINE [Concomitant]
     Indication: MULTIPLE ALLERGIES
     Route: 048
     Dates: start: 20111219
  12. CYMBALTA [Concomitant]
     Indication: ARTHRALGIA
     Route: 048
     Dates: start: 20120204
  13. DOXEPIN [Concomitant]
     Indication: ANXIETY
     Route: 048
     Dates: start: 20120220
  14. METHOCARBAMOL [Concomitant]
     Indication: MUSCLE RELAXANT THERAPY
     Route: 048
     Dates: start: 20120420
  15. BUSPAR [Concomitant]
     Indication: ANXIETY
     Route: 048
     Dates: start: 20120413
  16. HYDROXYZINE PAMOA [Concomitant]
     Indication: INSOMNIA
     Route: 048
     Dates: start: 20120607
  17. MELOXICAM [Concomitant]
     Indication: ARTHRITIS
     Route: 048
     Dates: start: 20120614
  18. XANAX [Concomitant]
     Indication: ANXIETY
     Route: 048
     Dates: start: 20120607
  19. XANAX [Concomitant]
     Indication: ANXIETY
     Route: 048
     Dates: start: 20120614
  20. OXYCODONE/ACETAMINOPHEN [Concomitant]
     Indication: PAIN
     Dosage: 5/325
     Route: 048
     Dates: start: 20120420

REACTIONS (1)
  - Syncope [Recovered/Resolved]
